FAERS Safety Report 7457724-1 (Version None)
Quarter: 2011Q2

REPORT INFORMATION
  Report Type: 
  Country: None (occurrence: None)
  Receive Date: 20110504
  Receipt Date: 20110428
  Transmission Date: 20111010
  Serious: Yes (Death)
  Sender: FDA-Public Use
  Company Number: DE-ROCHE-774141

PATIENT
  Sex: Female

DRUGS (3)
  1. BEVACIZUMAB [Suspect]
     Indication: NON-SMALL CELL LUNG CANCER
     Dosage: DATE OF LAST DOSE PRIOR TO DEATH 16 APR 2011
     Route: 042
     Dates: start: 20110416
  2. PEMETREXED [Suspect]
     Indication: NON-SMALL CELL LUNG CANCER
     Dosage: DOSE FORM INFUSION, DAT EOF LAST DOSE PRIOR TO SAE 16 APR 2011
     Route: 042
     Dates: start: 20110416
  3. CARBOPLATIN [Suspect]
     Indication: NON-SMALL CELL LUNG CANCER
     Dosage: DOSAGE FORM :INFUSION
     Route: 042
     Dates: start: 20110416

REACTIONS (1)
  - DEATH [None]
